FAERS Safety Report 5986078-2 (Version None)
Quarter: 2008Q4

REPORT INFORMATION
  Report Type: 
  Country: None (occurrence: None)
  Receive Date: 20081205
  Receipt Date: 20081205
  Transmission Date: 20090506
  Serious: Yes (Other)
  Sender: FDA-Public Use
  Company Number: None

PATIENT
  Age: 49 Year
  Sex: Female
  Weight: 62.1428 kg

DRUGS (1)
  1. BOTOX COSMETIC [Suspect]
     Indication: SKIN WRINKLING
     Dosage: 20 OR SO UNITS 2 X ONE YEAR OTHER
     Route: 050

REACTIONS (11)
  - ADNEXA UTERI PAIN [None]
  - ASTHENIA [None]
  - BACTERIAL INFECTION [None]
  - CERVICITIS [None]
  - CERVIX INFLAMMATION [None]
  - DELIRIUM [None]
  - EAR PAIN [None]
  - HYPERHIDROSIS [None]
  - IMMUNE SYSTEM DISORDER [None]
  - OROPHARYNGEAL PAIN [None]
  - VOMITING [None]
